FAERS Safety Report 6398710-2 (Version None)
Quarter: 2009Q4

REPORT INFORMATION
  Report Type: 
  Country: None (occurrence: None)
  Receive Date: 20091013
  Receipt Date: 20090929
  Transmission Date: 20100525
  Serious: Yes (Hospitalization)
  Sender: FDA-Public Use
  Company Number: PHHY2009IL42502

PATIENT
  Age: 62 Year
  Sex: Male

DRUGS (2)
  1. CLOZAPINE [Suspect]
     Indication: SCHIZOPHRENIA
     Dosage: 350 MG/DAY
  2. CLOZAPINE [Suspect]
     Dosage: 400 MG/DAY

REACTIONS (16)
  - ABDOMINAL DISTENSION [None]
  - ABDOMINAL PAIN [None]
  - ABDOMINAL TENDERNESS [None]
  - BLOOD CREATININE INCREASED [None]
  - BLOOD LACTIC ACID INCREASED [None]
  - BODY TEMPERATURE INCREASED [None]
  - COLONIC OBSTRUCTION [None]
  - DYSPNOEA [None]
  - FAECALOMA [None]
  - GASTROINTESTINAL SOUNDS ABNORMAL [None]
  - HEART RATE INCREASED [None]
  - LEUKOCYTOSIS [None]
  - METABOLIC ACIDOSIS [None]
  - NEUTROPHILIA [None]
  - PAIN [None]
  - RENAL FAILURE ACUTE [None]
